FAERS Safety Report 5167209-3 (Version None)
Quarter: 2006Q4

REPORT INFORMATION
  Report Type: 
  Country: None (occurrence: None)
  Receive Date: 20061130
  Receipt Date: 20061117
  Transmission Date: 20070319
  Serious: No
  Sender: FDA-Public Use
  Company Number: E2090-00133-SPO-JP

PATIENT
  Sex: Female

DRUGS (2)
  1. ZONISAMIDE [Suspect]
     Indication: CONVULSION
     Dosage: ORAL
     Route: 048
  2. TEMODAL [Concomitant]

REACTIONS (1)
  - STEVENS-JOHNSON SYNDROME [None]
